FAERS Safety Report 7560851-1 (Version None)
Quarter: 2011Q2

REPORT INFORMATION
  Report Type: 
  Country: None (occurrence: None)
  Receive Date: 20110621
  Receipt Date: 20100913
  Transmission Date: 20111010
  Serious: No
  Sender: FDA-Public Use
  Company Number: US-ASTRAZENECA-2010SE42891

PATIENT
  Age: 71 Year
  Sex: Female
  Weight: 53.5 kg

DRUGS (5)
  1. ATACAND [Suspect]
     Indication: HYPERTENSION
     Route: 048
     Dates: start: 20070101, end: 20100223
  2. DILTIAZEM [Concomitant]
     Indication: ARRHYTHMIA
  3. TOPROL-XL [Suspect]
     Route: 048
     Dates: start: 20100410, end: 20100428
  4. TOPROL-XL [Suspect]
     Indication: ARRHYTHMIA
     Route: 048
     Dates: start: 20100223, end: 20100310
  5. TOPROL-XL [Suspect]
     Route: 048
     Dates: start: 20100310

REACTIONS (10)
  - BLOOD CHLORIDE INCREASED [None]
  - OEDEMA PERIPHERAL [None]
  - BLOOD POTASSIUM INCREASED [None]
  - DRUG INEFFECTIVE [None]
  - HYPERTENSION [None]
  - CYANOSIS [None]
  - BLOOD CALCIUM INCREASED [None]
  - BLOOD SODIUM INCREASED [None]
  - PARAESTHESIA [None]
  - HEART RATE IRREGULAR [None]
